FAERS Safety Report 11511209 (Version 2)
Quarter: 2017Q1

REPORT INFORMATION
  Report Type: Report from Study
  Country: BR (occurrence: BR)
  Receive Date: 20150915
  Receipt Date: 20170113
  Transmission Date: 20170428
  Serious: Yes (Death)
  Sender: FDA-Public Use
  Company Number: PHHY2015BR110945

PATIENT
  Sex: Female
  Weight: 76 kg

DRUGS (14)
  1. ESPRAN [Concomitant]
     Active Substance: ESCITALOPRAM OXALATE
     Indication: DEPRESSION
     Dosage: 2 DF, BID (IN THE MORNING AND AT NIGHT, 1 YEAR AGO)
     Route: 048
  2. RIVOTRIL [Concomitant]
     Active Substance: CLONAZEPAM
     Indication: ANXIETY
     Dosage: 5 DRP, QD (2 YEARS AGO)
     Route: 048
  3. BENICAR [Concomitant]
     Active Substance: OLMESARTAN MEDOXOMIL
     Indication: BLOOD PRESSURE ABNORMAL
     Dosage: 1 DF, QD ( IN THE MORNING)
     Route: 048
     Dates: start: 201307
  4. OMEPRAZOLE. [Concomitant]
     Active Substance: OMEPRAZOLE
     Indication: HIATUS HERNIA
     Dosage: 1 DF, QD ( 5 YEARS AGO)
     Route: 048
  5. ALENIA [Concomitant]
     Active Substance: BUDESONIDE\FORMOTEROL FUMARATE
     Indication: ASTHMA
     Dosage: 2 DF, BID (IN THE MORNING AND AT NIGHT)
     Route: 055
     Dates: start: 2009
  6. BETASERC [Concomitant]
     Active Substance: BETAHISTINE
     Indication: VERTIGO
  7. PURAN [Concomitant]
     Active Substance: LEVOTHYROXINE SODIUM
     Indication: THYROID DISORDER
     Dosage: 1 DF, QD (1 YEAR AGO)
     Route: 048
  8. DIOVAN HCT [Concomitant]
     Active Substance: HYDROCHLOROTHIAZIDE\VALSARTAN
     Indication: HYPERTENSION
     Dosage: 1 DF, QD
     Route: 065
  9. EXELON PATCH [Suspect]
     Active Substance: RIVASTIGMINE
     Indication: PRODUCT USED FOR UNKNOWN INDICATION
     Route: 062
  10. AMLODIPINE BESYLATE. [Concomitant]
     Active Substance: AMLODIPINE BESYLATE
     Indication: BLOOD PRESSURE ABNORMAL
     Dosage: 2 DF, BID (IN THE MORNING AND AT NIGHT)
     Route: 048
     Dates: start: 201307
  11. LISADOR [Concomitant]
     Active Substance: DIPYRONE\PROMETHAZINE HYDROCHLORIDE
     Indication: PAIN IN EXTREMITY
     Dosage: 1 OR 2 TABLET, QD, IF PAIN , 1 YEAR AGO
     Route: 065
  12. GLUCOSAMINE + CHONDROITIN [Concomitant]
     Active Substance: CHONDROITIN SULFATE (BOVINE)\GLUCOSAMINE HYDROCHLORIDE
     Indication: BONE DISORDER
     Dosage: 2 DF, QD
     Route: 048
     Dates: start: 2010
  13. FUROSEMIDE. [Concomitant]
     Active Substance: FUROSEMIDE
     Indication: DIURETIC THERAPY
     Dosage: 2 DF, QD (5 YEARS AGO)
     Route: 048
  14. BETASERC [Concomitant]
     Active Substance: BETAHISTINE
     Indication: DIZZINESS
     Dosage: 2 DF, BID ( IN THE MORNING AND AT NIGHT, 2 YEARS AGO)
     Route: 048

REACTIONS (4)
  - Cardiomegaly [Fatal]
  - Respiratory failure [Fatal]
  - Blood pressure increased [Fatal]
  - Pulmonary fibrosis [Fatal]
